FAERS Safety Report 5958167-X (Version None)
Quarter: 2008Q4

REPORT INFORMATION
  Report Type: 
  Country: None (occurrence: None)
  Receive Date: 20081119
  Receipt Date: 20081112
  Transmission Date: 20090506
  Serious: Yes (Hospitalization)
  Sender: FDA-Public Use
  Company Number: TR-ABBOTT-08P-161-0488163-00

PATIENT
  Age: 42 Year
  Sex: Male

DRUGS (4)
  1. CYCLOSPORINE [Suspect]
     Indication: BEHCET'S SYNDROME
     Dosage: 2.5 MG/KG/DAY
  2. CYCLOSPORINE [Suspect]
     Indication: UVEITIS
  3. MYCOPHENOLATE MOFETIL [Concomitant]
     Indication: BEHCET'S SYNDROME
  4. MYCOPHENOLATE MOFETIL [Concomitant]
     Indication: UVEITIS

REACTIONS (1)
  - BRAIN STEM SYNDROME [None]
